FAERS Safety Report 10108954 (Version 2)
Quarter: 2014Q2

REPORT INFORMATION
  Report Type: Spontaneous
  Country: FR (occurrence: FR)
  Receive Date: 20140425
  Receipt Date: 20140630
  Transmission Date: 20141212
  Serious: Yes (Hospitalization)
  Sender: FDA-Public Use
  Company Number: FR-ROCHE-1386844

PATIENT
  Age: 60 Year
  Sex: Male

DRUGS (12)
  1. RIVOTRIL [Suspect]
     Indication: PRODUCT USED FOR UNKNOWN INDICATION
     Route: 030
     Dates: end: 20140319
  2. NORSET [Suspect]
     Indication: PRODUCT USED FOR UNKNOWN INDICATION
     Route: 048
     Dates: end: 20140401
  3. DIPIPERON [Suspect]
     Indication: PRODUCT USED FOR UNKNOWN INDICATION
     Route: 048
     Dates: end: 20140319
  4. RISPERDAL [Suspect]
     Indication: PRODUCT USED FOR UNKNOWN INDICATION
     Route: 048
  5. XANAX [Suspect]
     Indication: PRODUCT USED FOR UNKNOWN INDICATION
     Route: 065
  6. URBANYL [Suspect]
     Indication: PRODUCT USED FOR UNKNOWN INDICATION
     Route: 048
  7. LAMICTAL [Suspect]
     Indication: PRODUCT USED FOR UNKNOWN INDICATION
     Route: 048
     Dates: end: 20140319
  8. TIAPRIDAL [Suspect]
     Indication: PRODUCT USED FOR UNKNOWN INDICATION
     Route: 048
  9. COUMADINE [Concomitant]
     Dosage: IN THE MID DAY
     Route: 048
  10. INEXIUM [Concomitant]
     Dosage: IN THE EVENING
     Route: 048
  11. XATRAL [Concomitant]
     Dosage: IN THE EVENING
     Route: 048
  12. SCOPODERM [Concomitant]
     Route: 062

REACTIONS (5)
  - Altered state of consciousness [Recovered/Resolved]
  - Accidental overdose [Unknown]
  - Urinary retention [Recovered/Resolved]
  - Constipation [Recovered/Resolved]
  - Coma [Recovered/Resolved]
